FAERS Safety Report 6163904-8 (Version None)
Quarter: 2009Q2

REPORT INFORMATION
  Report Type: 
  Country: None (occurrence: None)
  Receive Date: 20090422
  Receipt Date: 20090420
  Transmission Date: 20091009
  Serious: No
  Sender: FDA-Public Use
  Company Number: US-B.I. PHARMACEUTICALS,INC./RIDGEFIELD-2009-BP-03640BP

PATIENT
  Age: 68 Year
  Sex: Male
  Weight: 111.1 kg

DRUGS (1)
  1. SPIRIVA [Suspect]
     Route: 055

REACTIONS (4)
  - ARTHRITIS [None]
  - NODULE ON EXTREMITY [None]
  - SCROTAL PAIN [None]
  - SUBCUTANEOUS NODULE [None]
